FAERS Safety Report 5770813-2 (Version None)
Quarter: 2008Q2

REPORT INFORMATION
  Report Type: 
  Country: None (occurrence: None)
  Receive Date: 20080613
  Receipt Date: 20080514
  Transmission Date: 20081010
  Serious: No
  Sender: FDA-Public Use
  Company Number: US-ABBOTT-08P-163-0451934-00

PATIENT
  Sex: Female
  Weight: 86.26 kg

DRUGS (11)
  1. HUMIRA [Suspect]
     Indication: CROHN'S DISEASE
     Route: 058
     Dates: start: 20070401
  2. HUMIRA [Suspect]
     Route: 058
  3. HUMIRA [Suspect]
     Route: 058
     Dates: end: 20080201
  4. HUMIRA [Suspect]
     Route: 058
     Dates: start: 20080201, end: 20080223
  5. LOMOTIL [Concomitant]
     Indication: CROHN'S DISEASE
     Dosage: TINY PILL ONE 4 TIMES A DAY AS NEEDED
     Route: 048
     Dates: start: 19930101
  6. IMODIUM [Concomitant]
     Indication: CROHN'S DISEASE
     Dosage: TAKES 6 - UNKNOWN DOSE, CAN'T LOCATE CONTAINER
     Route: 048
     Dates: start: 19920101
  7. TRAZODONE HCL [Concomitant]
     Indication: SLEEP DISORDER THERAPY
     Route: 048
     Dates: start: 19920101
  8. ESTRODIL [Concomitant]
     Indication: HORMONE REPLACEMENT THERAPY
     Dosage: 1 MILLIGRAM EVERY OTHER DAY, WHEN I REMEMBER
     Route: 048
     Dates: start: 19950101
  9. FUROSEMIDE [Concomitant]
     Indication: FLUID RETENTION
     Route: 048
     Dates: start: 19950101
  10. L-HYOSCYAMINE [Concomitant]
     Indication: MUSCLE SPASMS
     Dosage: DAILY: UP TO 0.375 MG - 0.125 MG UPT TO 3 TABS DAILY AS NEEDED
     Route: 048
     Dates: start: 19930101
  11. ACETAMINOPHEN [Concomitant]
     Indication: PAIN
     Route: 048

REACTIONS (6)
  - BRONCHITIS [None]
  - CROHN'S DISEASE [None]
  - DIARRHOEA [None]
  - DRUG INEFFECTIVE [None]
  - DYSPNOEA [None]
  - INFLUENZA [None]
